FAERS Safety Report 11015488 (Version 2)
Quarter: 2015Q2

REPORT INFORMATION
  Report Type: Spontaneous
  Country: US (occurrence: US)
  Receive Date: 20150412
  Receipt Date: 20150525
  Transmission Date: 20150821
  Serious: No
  Sender: FDA-Public Use
  Company Number: US-JNJFOC-20140303931

PATIENT
  Age: 43 Year
  Sex: Female
  Weight: 43.09 kg

DRUGS (3)
  1. METHOTREXATE [Concomitant]
     Active Substance: METHOTREXATE
     Indication: RHEUMATOID ARTHRITIS
     Route: 048
     Dates: start: 2009
  2. SIMPONI [Suspect]
     Active Substance: GOLIMUMAB
     Indication: RHEUMATOID ARTHRITIS
     Route: 058
     Dates: start: 2011
  3. SPRINTEC [Concomitant]
     Active Substance: ETHINYL ESTRADIOL\NORGESTIMATE
     Indication: CONTRACEPTION
     Route: 048
     Dates: start: 2009

REACTIONS (2)
  - Device malfunction [Unknown]
  - Drug dose omission [Not Recovered/Not Resolved]

NARRATIVE: CASE EVENT DATE: 20140304
